FAERS Safety Report 7816430-1 (Version None)
Quarter: 2011Q4

REPORT INFORMATION
  Report Type: 
  Country: None (occurrence: None)
  Receive Date: 20111017
  Receipt Date: 20111005
  Transmission Date: 20120403
  Serious: Yes (Life-Threatening, Hospitalization)
  Sender: FDA-Public Use
  Company Number: FR-JNJFOC-20111004857

PATIENT
  Sex: Female

DRUGS (12)
  1. PRAZEPAM [Suspect]
     Indication: PRODUCT USED FOR UNKNOWN INDICATION
     Route: 048
  2. PRAZEPAM [Suspect]
     Dosage: 11 TABLETS (110 MG)
     Route: 048
     Dates: start: 20110525, end: 20110525
  3. ZOPICLONE [Concomitant]
  4. PRAZEPAM [Suspect]
     Route: 048
  5. CLONAZEPAM [Suspect]
     Route: 048
     Dates: start: 20110525, end: 20110525
  6. PRAZEPAM [Suspect]
     Route: 048
     Dates: start: 20110525
  7. LYRICA [Suspect]
     Dosage: 41 TABLETS(8.2G)
     Dates: start: 20110525, end: 20110525
  8. CYMBALTA [Concomitant]
  9. LYRICA [Suspect]
     Indication: PRODUCT USED FOR UNKNOWN INDICATION
  10. ACETAMINOPHEN AND TRAMADOL HCL [Suspect]
     Indication: PRODUCT USED FOR UNKNOWN INDICATION
     Route: 048
     Dates: start: 20110525, end: 20110525
  11. CLONAZEPAM [Suspect]
     Indication: PRODUCT USED FOR UNKNOWN INDICATION
     Route: 048
  12. ATARAX [Concomitant]

REACTIONS (7)
  - HYPOTHERMIA [None]
  - MULTIPLE DRUG OVERDOSE INTENTIONAL [None]
  - TOXICITY TO VARIOUS AGENTS [None]
  - RESPIRATORY DEPRESSION [None]
  - CYTOLYTIC HEPATITIS [None]
  - DEPRESSED LEVEL OF CONSCIOUSNESS [None]
  - RESPIRATORY ACIDOSIS [None]
